FAERS Safety Report 9995318 (Version 1)
Quarter: 2014Q1

REPORT INFORMATION
  Report Type: Spontaneous
  Country: US (occurrence: None)
  Receive Date: 20140307
  Receipt Date: 20140307
  Transmission Date: 20141002
  Serious: Yes (Disabling)
  Sender: FDA-Public Use
  Company Number: None

PATIENT
  Age: 86 Year
  Sex: Male
  Weight: 72.12 kg

DRUGS (12)
  1. CARVEDILOL [Suspect]
     Indication: CARDIAC DISORDER
     Route: 048
     Dates: start: 20140113
  2. CARVEDILOL [Suspect]
     Indication: HYPERTENSION
     Route: 048
     Dates: start: 20140113
  3. CARVEDILOL [Suspect]
     Indication: ATRIAL FIBRILLATION
     Route: 048
     Dates: start: 20140113
  4. FUROSEMIDE [Concomitant]
  5. LOSARTAN [Concomitant]
  6. ZETIA [Concomitant]
  7. KLOR-CON [Concomitant]
  8. CARVEDILOL [Concomitant]
  9. CENTRUM 50+ [Concomitant]
  10. ASPIRIN [Concomitant]
  11. B-1/THIAMINE [Concomitant]
  12. NASACORT [Concomitant]

REACTIONS (1)
  - Constipation [None]
